FAERS Safety Report 8622803-X (Version None)
Quarter: 2012Q3

REPORT INFORMATION
  Report Type: 
  Country: None (occurrence: None)
  Receive Date: 20120827
  Receipt Date: 20120820
  Transmission Date: 20120928
  Serious: Yes (Hospitalization, Other)
  Sender: FDA-Public Use
  Company Number: US-TEVA-355110USA

PATIENT
  Age: 24 Year
  Sex: Male

DRUGS (2)
  1. PRIMAQUINE [Concomitant]
     Indication: MALARIA PROPHYLAXIS
     Route: 065
  2. MEFLOQUINE HYDROCHLORIDE [Suspect]
     Indication: MALARIA PROPHYLAXIS
     Dosage: FIRST DOSE OF 250MG; SUBSEQUENT DOSAGES NOT STATED
     Route: 065

REACTIONS (8)
  - INTENTIONAL SELF-INJURY [None]
  - HEADACHE [None]
  - SUICIDAL IDEATION [None]
  - SLEEP DISORDER [None]
  - ENCEPHALOPATHY [None]
  - TOXICITY TO VARIOUS AGENTS [None]
  - BRAIN INJURY [None]
  - VESTIBULAR DISORDER [None]
